FAERS Safety Report 5676454-X (Version None)
Quarter: 2008Q2

REPORT INFORMATION
  Report Type: 
  Country: None (occurrence: None)
  Receive Date: 20080310
  Receipt Date: 20080215
  Transmission Date: 20081010
  Serious: Yes (Other)
  Sender: FDA-Public Use
  Company Number: 08-096

PATIENT
  Age: 87 Year
  Sex: Female
  Weight: 58.0604 kg

DRUGS (11)
  1. ALEVE [Suspect]
     Indication: ARTHRITIS
     Dosage: 440 MG, DAILY, ORAL; PRIOR TO 08/17/07
     Route: 048
     Dates: end: 20070817
  2. METHOTREXATE [Suspect]
     Dosage: DAILY, ORAL, PRIOR TO 8/17/07
     Route: 048
     Dates: end: 20070817
  3. NORVASC [Concomitant]
  4. ENALAPRIL MALEATE [Concomitant]
  5. FOLIC ACID [Concomitant]
  6. HYDROCHLOROTHIAZIDE [Concomitant]
  7. FOSAMAX [Concomitant]
  8. MULTI-VITAMIN [Concomitant]
  9. ASPIRIN [Concomitant]
  10. VITAMIN E 400 [Concomitant]
  11. VIACTIV [Concomitant]

REACTIONS (1)
  - FAECES DISCOLOURED [None]
